FAERS Safety Report 26191865 (Version 1)
Quarter: 2025Q4

REPORT INFORMATION
  Report Type: Report from Study
  Country: US (occurrence: US)
  Receive Date: 20251223
  Receipt Date: 20251223
  Transmission Date: 20260118
  Serious: Yes (Other)
  Sender: NOVARTIS
  Company Number: US-002147023-NVSC2025US140756

PATIENT
  Age: 26 Year
  Sex: Female

DRUGS (6)
  1. FABHALTA [Suspect]
     Active Substance: IPTACOPAN HYDROCHLORIDE
     Indication: Nephritic syndrome
     Dosage: 200 MG, BID
     Route: 048
     Dates: start: 202507
  2. FABHALTA [Suspect]
     Active Substance: IPTACOPAN HYDROCHLORIDE
     Indication: Glomerulonephritis
     Dosage: 200 MG, BID
     Route: 048
     Dates: start: 20250825, end: 202511
  3. FABHALTA [Suspect]
     Active Substance: IPTACOPAN HYDROCHLORIDE
     Indication: Nephropathy
  4. LISINOPRIL [Concomitant]
     Active Substance: LISINOPRIL
     Indication: Product used for unknown indication
     Dosage: 2.5 MG, QD
     Route: 048
  5. LASIX [Concomitant]
     Active Substance: FUROSEMIDE
     Indication: Swelling
     Dosage: 20 MG, QD DAILY AS NEEDED
     Route: 048
  6. CALCITRIOL [Concomitant]
     Active Substance: CALCITRIOL
     Indication: Product used for unknown indication
     Dosage: 0.25 MCG, TIW
     Route: 065

REACTIONS (6)
  - Renal impairment [Unknown]
  - Product dose omission issue [Unknown]
  - Product supply issue [Unknown]
  - Blood creatinine increased [Unknown]
  - Loss of therapeutic response [Unknown]
  - Headache [Unknown]

NARRATIVE: CASE EVENT DATE: 20251120
